FAERS Safety Report 5341039-1 (Version None)
Quarter: 2007Q2

REPORT INFORMATION
  Report Type: 
  Country: None (occurrence: None)
  Receive Date: 20070530
  Receipt Date: 20070517
  Transmission Date: 20071010
  Serious: Yes (Hospitalization)
  Sender: FDA-Public Use
  Company Number: 234009K07USA

PATIENT
  Age: 57 Year
  Sex: Female

DRUGS (2)
  1. REBIF (NTERFERON BETA) [Suspect]
     Indication: MULTIPLE SCLEROSIS
     Dosage: 44 MCG, 3 IN 1 WEEKS, SUBCUTANEOUS
     Route: 058
     Dates: start: 20070316, end: 20070421
  2. NEURONTIN [Concomitant]

REACTIONS (3)
  - CONSTIPATION [None]
  - DIVERTICULITIS [None]
  - LARGE INTESTINE PERFORATION [None]
